FAERS Safety Report 8573575 (Version 3)
Quarter: 2012Q4

REPORT INFORMATION
  Report Type: 
  Country: US (occurrence: US)
  Receive Date: 20120522
  Receipt Date: 20121001
  Transmission Date: 20130627
  Serious: Yes (Hospitalization)
  Sender: FDA-Public Use
  Company Number: US-ELI_LILLY_AND_COMPANY-US201204009253

PATIENT
  Age: 72 None
  Sex: Male

DRUGS (10)
  1. FORTEO [Suspect]
     Indication: OSTEOPOROSIS
     Dosage: 20 ug, qd
     Dates: start: 20120308, end: 20120828
  2. FORTEO [Suspect]
     Dosage: 20 ug, qd
  3. FORTEO [Suspect]
     Dosage: 20 ug, qd
     Route: 058
  4. FORTEO [Suspect]
     Dosage: 20 ug, qd
     Dates: end: 20120828
  5. MULTAQ [Concomitant]
  6. WARFARIN [Concomitant]
  7. DILTIAZEM [Concomitant]
     Dosage: 180 mg, UNK
  8. RANITIDINE [Concomitant]
     Dosage: UNK, tid
  9. FUROSEMIDE [Concomitant]
  10. HYDROCODONE [Concomitant]

REACTIONS (6)
  - Compression fracture [Unknown]
  - Back pain [Not Recovered/Not Resolved]
  - Rash [Not Recovered/Not Resolved]
  - Pruritus [Recovered/Resolved]
  - Dermatitis [Unknown]
  - Rash generalised [Recovering/Resolving]
